FAERS Safety Report 24195280 (Version 1)
Quarter: 2024Q3

REPORT INFORMATION
  Report Type: Report from Study
  Country: US (occurrence: US)
  Receive Date: 20240809
  Receipt Date: 20240809
  Transmission Date: 20241017
  Serious: Yes (Other)
  Sender: NOVARTIS
  Company Number: US-002147023-NVSC2023US261499

PATIENT
  Sex: Female

DRUGS (1)
  1. KISQALI [Suspect]
     Active Substance: RIBOCICLIB
     Indication: Breast cancer
     Dosage: 600 MG, QD
     Route: 048

REACTIONS (8)
  - Lyme disease [Unknown]
  - Condition aggravated [Unknown]
  - Lymphadenopathy [Unknown]
  - Weight decreased [Unknown]
  - Cardiac monitoring abnormal [Unknown]
  - Tooth disorder [Unknown]
  - Nail disorder [Unknown]
  - Cardiac disorder [Unknown]
